FAERS Safety Report 21689965 (Version 1)
Quarter: 2022Q4

REPORT INFORMATION
  Report Type: Report from Study
  Country: US (occurrence: US)
  Receive Date: 20221206
  Receipt Date: 20221206
  Transmission Date: 20230112
  Serious: No
  Sender: FDA-Public Use
  Company Number: US-SUNOVION-2022SUN003347AA

PATIENT
  Age: 59 Year
  Sex: Male

DRUGS (2)
  1. KYNMOBI [Suspect]
     Active Substance: APOMORPHINE HYDROCHLORIDE
     Dosage: 15 MG
     Route: 060
     Dates: start: 20221203
  2. KYNMOBI [Suspect]
     Active Substance: APOMORPHINE HYDROCHLORIDE
     Dosage: UNK
     Route: 060
     Dates: start: 20221204

REACTIONS (4)
  - Feeling hot [Unknown]
  - Blepharospasm [Unknown]
  - Paranasal sinus discomfort [Unknown]
  - Feeling abnormal [Unknown]

NARRATIVE: CASE EVENT DATE: 20221204
